FAERS Safety Report 21771684 (Version 2)
Quarter: 2023Q1

REPORT INFORMATION
  Report Type: Spontaneous
  Country: US (occurrence: None)
  Receive Date: 20221223
  Receipt Date: 20230110
  Transmission Date: 20230418
  Serious: Yes (Other)
  Sender: FDA-Public Use
  Company Number: 2022A410450

PATIENT
  Sex: Female
  Weight: 74.8 kg

DRUGS (4)
  1. EVUSHELD [Suspect]
     Active Substance: CILGAVIMAB\TIXAGEVIMAB
     Indication: Renal transplant
     Dosage: ONCE/SINGLE ADMINISTRATION
     Route: 030
     Dates: start: 202210
  2. EVUSHELD [Suspect]
     Active Substance: CILGAVIMAB\TIXAGEVIMAB
     Indication: Pancreas transplant
     Dosage: ONCE/SINGLE ADMINISTRATION
     Route: 030
     Dates: start: 202210
  3. EVUSHELD [Suspect]
     Active Substance: CILGAVIMAB\TIXAGEVIMAB
     Indication: Immunosuppressant drug therapy
     Dosage: ONCE/SINGLE ADMINISTRATION
     Route: 030
     Dates: start: 202210
  4. PLAVIX [Concomitant]
     Active Substance: CLOPIDOGREL BISULFATE

REACTIONS (3)
  - Lipase increased [Not Recovered/Not Resolved]
  - Pancreas transplant rejection [Not Recovered/Not Resolved]
  - Blood glucose increased [Not Recovered/Not Resolved]
